FAERS Safety Report 4673066-1 (Version None)
Quarter: 2005Q2

REPORT INFORMATION
  Report Type: 
  Country: None (occurrence: None)
  Receive Date: 20050523
  Receipt Date: 20050506
  Transmission Date: 20051028
  Serious: Yes (Other)
  Sender: FDA-Public Use
  Company Number: L05-CAN-01721-01

PATIENT
  Age: 12 Year
  Sex: Female
  Weight: 30.3 kg

DRUGS (6)
  1. LEVOTHYROXINE SODIUM [Suspect]
     Indication: ANOREXIA NERVOSA
     Dosage: 50 MCG QD
  2. LEVOTHYROXINE SODIUM [Suspect]
     Indication: HYPOTHYROIDISM
     Dosage: 50 MCG QD
  3. LEVOTHYROXINE SODIUM [Suspect]
     Indication: ANOREXIA NERVOSA
     Dosage: 75 MCG QD
  4. LEVOTHYROXINE SODIUM [Suspect]
     Indication: HYPOTHYROIDISM
     Dosage: 75 MCG QD
  5. LEVOTHYROXINE SODIUM [Suspect]
     Indication: ANOREXIA NERVOSA
     Dosage: 62.5 MCG QD
  6. LEVOTHYROXINE SODIUM [Suspect]
     Indication: HYPOTHYROIDISM
     Dosage: 62.5 MCG QD

REACTIONS (9)
  - DISTRACTIBILITY [None]
  - EUPHORIC MOOD [None]
  - GRANDIOSITY [None]
  - HYPOMANIA [None]
  - INAPPROPRIATE AFFECT [None]
  - LOGORRHOEA [None]
  - PSYCHOMOTOR HYPERACTIVITY [None]
  - RESTLESSNESS [None]
  - STRESS INCONTINENCE [None]
